FAERS Safety Report 6301500-X (Version None)
Quarter: 2009Q3

REPORT INFORMATION
  Report Type: 
  Country: None (occurrence: None)
  Receive Date: 20090807
  Receipt Date: 20090803
  Transmission Date: 20100115
  Serious: Yes (Hospitalization)
  Sender: FDA-Public Use
  Company Number: B0584078A

PATIENT
  Sex: Female
  Weight: 53 kg

DRUGS (2)
  1. ARIXTRA [Suspect]
     Indication: PHLEBITIS
     Dosage: 7.5MG PER DAY
     Route: 058
     Dates: start: 20090602, end: 20090605
  2. PREVISCAN [Suspect]
     Indication: PHLEBITIS
     Dosage: 20MG PER DAY
     Route: 048
     Dates: start: 20090602, end: 20090605

REACTIONS (10)
  - ABDOMINAL WALL HAEMATOMA [None]
  - HAEMOGLOBIN DECREASED [None]
  - HEART RATE INCREASED [None]
  - HYPOTENSION [None]
  - INJECTION SITE PAIN [None]
  - MALAISE [None]
  - PALLOR [None]
  - PELVIC FLUID COLLECTION [None]
  - PLEURAL EFFUSION [None]
  - PROTHROMBIN LEVEL DECREASED [None]
